FAERS Safety Report 17425836 (Version 3)
Quarter: 2020Q1

REPORT INFORMATION
  Report Type: Spontaneous
  Country: DE (occurrence: DE)
  Receive Date: 20200217
  Receipt Date: 20200318
  Transmission Date: 20200409
  Serious: Yes (Other)
  Sender: FDA-Public Use
  Company Number: DE-PFIZER INC-2020062281

PATIENT
  Sex: Female
  Weight: 62 kg

DRUGS (3)
  1. EXEMESTANE. [Suspect]
     Active Substance: EXEMESTANE
     Indication: PRODUCT USED FOR UNKNOWN INDICATION
     Dosage: UNK
     Route: 065
  2. ZOMETA [Suspect]
     Active Substance: ZOLEDRONIC ACID
     Indication: BONE CANCER
     Dosage: 2 DF, CYCLIC (2 INFUSIONS OF 10 ML; 4 MG PER YEAR)
     Route: 041
     Dates: start: 2019
  3. ZOMETA [Suspect]
     Active Substance: ZOLEDRONIC ACID
     Indication: BREAST NEOPLASM

REACTIONS (10)
  - Unresponsive to stimuli [Recovered/Resolved]
  - Arrhythmia [Recovered/Resolved]
  - Osteopenia [Unknown]
  - Chills [Unknown]
  - Rash [Unknown]
  - Fatigue [Recovered/Resolved]
  - Pruritus [Unknown]
  - Acute phase reaction [Unknown]
  - Feeling cold [Recovered/Resolved]
  - Arthralgia [Recovered/Resolved]

NARRATIVE: CASE EVENT DATE: 2019
